FAERS Safety Report 6890759-6 (Version None)
Quarter: 2010Q3

REPORT INFORMATION
  Report Type: 
  Country: None (occurrence: None)
  Receive Date: 20100731
  Receipt Date: 20090317
  Transmission Date: 20110219
  Serious: No
  Sender: FDA-Public Use
  Company Number: US-PFIZER INC-2009166748

PATIENT
  Sex: Female
  Weight: 54.9 kg

DRUGS (1)
  1. LIPITOR [Suspect]
     Indication: CEREBROVASCULAR ACCIDENT PROPHYLAXIS
     Dosage: 80 MG, 1X/DAY
     Dates: start: 20090204, end: 20090204

REACTIONS (1)
  - MYALGIA [None]
